FAERS Safety Report 25049376 (Version 1)
Quarter: 2025Q1

REPORT INFORMATION
  Report Type: Spontaneous
  Country: GB (occurrence: GB)
  Receive Date: 20250307
  Receipt Date: 20250307
  Transmission Date: 20250408
  Serious: Yes (Other)
  Sender: ADVANZ PHARMA
  Company Number: GB-MHRA-MIDB-be175863-4f9f-4985-9488-51284431c812

PATIENT

DRUGS (19)
  1. PREDNISOLONE [Suspect]
     Active Substance: PREDNISOLONE
  2. PREDNISOLONE [Suspect]
     Active Substance: PREDNISOLONE
     Dates: start: 20240927
  3. PREDNISOLONE [Suspect]
     Active Substance: PREDNISOLONE
  4. PREDNISOLONE [Suspect]
     Active Substance: PREDNISOLONE
  5. PREDNISOLONE [Suspect]
     Active Substance: PREDNISOLONE
  6. PREDNISOLONE [Suspect]
     Active Substance: PREDNISOLONE
  7. PREDNISOLONE [Suspect]
     Active Substance: PREDNISOLONE
  8. PREDNISOLONE [Suspect]
     Active Substance: PREDNISOLONE
  9. PREDNISOLONE [Suspect]
     Active Substance: PREDNISOLONE
  10. Salofalk 2g/59ml enema (Dr. Falk Pharma UK Ltd) [Concomitant]
  11. INFLIXIMAB [Concomitant]
     Active Substance: INFLIXIMAB
  12. ATORVASTATIN [Concomitant]
     Active Substance: ATORVASTATIN
  13. SERTRALINE [Concomitant]
     Active Substance: SERTRALINE HYDROCHLORIDE
  14. CODEINE [Concomitant]
     Active Substance: CODEINE
  15. Mesalazine 400mg gastro-resistant tablets [Concomitant]
  16. Octasa 400 mg MR gastro-resistant tablets [Concomitant]
  17. Evacal-D3 1500 mg / 400 unit chewable tablets [Concomitant]
  18. Spikevax JN.1 COVID-19 mRNA Vaccine 0.1 mg / ml dispersion for injecti [Concomitant]
     Route: 030
     Dates: start: 202401
  19. Ensure Plus milkshake style liquid (Flavour Not Specified) 200 mg bd a [Concomitant]

REACTIONS (3)
  - Hallucination [Unknown]
  - Agitation [Unknown]
  - Confusional state [Unknown]
